FAERS Safety Report 6389394-8 (Version None)
Quarter: 2009Q4

REPORT INFORMATION
  Report Type: 
  Country: None (occurrence: None)
  Receive Date: 20091006
  Receipt Date: 20071008
  Transmission Date: 20100525
  Serious: Yes (Hospitalization, Other)
  Sender: FDA-Public Use
  Company Number: US-ASTRAZENECA-2008UW10635

PATIENT
  Age: 48 Year
  Sex: Male
  Weight: 67.6 kg

DRUGS (11)
  1. SEROQUEL [Suspect]
     Indication: SCHIZOPHRENIA
     Route: 048
     Dates: start: 20030101
  2. SEROQUEL [Suspect]
     Indication: BIPOLAR DISORDER
     Route: 048
     Dates: start: 20030101
  3. SEROQUEL [Suspect]
     Indication: DEPRESSION
     Route: 048
     Dates: start: 20030101
  4. SEROQUEL [Suspect]
     Dosage: 200-600 MG
     Route: 048
     Dates: start: 20040319
  5. SEROQUEL [Suspect]
     Dosage: 200-600 MG
     Route: 048
     Dates: start: 20040319
  6. SEROQUEL [Suspect]
     Dosage: 200-600 MG
     Route: 048
     Dates: start: 20040319
  7. RISPERDAL [Concomitant]
  8. TRAZODONE [Concomitant]
  9. CYMBALTA [Concomitant]
  10. CELEXA [Concomitant]
     Route: 048
     Dates: start: 20040319
  11. GABITRIL [Concomitant]
     Route: 048
     Dates: start: 20040319

REACTIONS (5)
  - ANTICOAGULANT THERAPY [None]
  - DIABETES MELLITUS [None]
  - DIABETES MELLITUS INADEQUATE CONTROL [None]
  - DIABETIC NEUROPATHY [None]
  - HYPERGLYCAEMIA [None]
